FAERS Safety Report 8827727 (Version 1)
Quarter: 2012Q4

REPORT INFORMATION
  Report Type: 
  Country: US (occurrence: US)
  Receive Date: 20121005
  Receipt Date: 20121005
  Transmission Date: 20130627
  Serious: Yes (Hospitalization, Other)
  Sender: FDA-Public Use
  Company Number: US-ROCHE-1131272

PATIENT
  Age: 65 Year
  Sex: Male

DRUGS (12)
  1. RITUXAN [Suspect]
     Indication: CHRONIC LYMPHOCYTIC LEUKAEMIA
     Route: 065
     Dates: start: 20010808
  2. ZESTRIL [Concomitant]
  3. GLUCOPHAGE [Concomitant]
     Route: 065
  4. DIURETIC NOS [Concomitant]
  5. ALDACTONE [Concomitant]
     Route: 065
  6. CYCLOPHOSPHAMIDE [Concomitant]
     Route: 065
     Dates: start: 20010913
  7. VINCRISTINE [Concomitant]
     Route: 065
     Dates: start: 20010913
  8. PREDNISONE [Concomitant]
     Route: 065
     Dates: start: 20010913
  9. DOXORUBICIN [Concomitant]
     Route: 065
     Dates: start: 20010913
  10. FLUDARABINE [Concomitant]
  11. CHLORAMBUCIL [Concomitant]
     Route: 065
  12. CHLORAMBUCIL [Concomitant]
     Route: 065

REACTIONS (7)
  - Pyrexia [Unknown]
  - Ascites [Unknown]
  - Spleen disorder [Unknown]
  - Lymphadenopathy [Unknown]
  - Fatigue [Unknown]
  - Decreased appetite [Unknown]
  - Oedema peripheral [Unknown]
